FAERS Safety Report 9426869 (Version 1)
Quarter: 2013Q3

REPORT INFORMATION
  Report Type: Spontaneous
  Country: US (occurrence: US)
  Receive Date: 20130730
  Receipt Date: 20130730
  Transmission Date: 20140515
  Serious: No
  Sender: FDA-Public Use
  Company Number: US-SANOFI-AVENTIS-2013SA055174

PATIENT
  Age: 57 Year
  Sex: Female

DRUGS (2)
  1. AMBIEN [Suspect]
  2. CHAMPIX [Suspect]
     Route: 048
     Dates: start: 20130304

REACTIONS (2)
  - Rash [Recovered/Resolved]
  - Pruritus [Recovered/Resolved]
